FAERS Safety Report 5143029-0 (Version None)
Quarter: 2006Q4

REPORT INFORMATION
  Report Type: 
  Country: None (occurrence: None)
  Receive Date: 20061103
  Receipt Date: 20060712
  Transmission Date: 20070319
  Serious: Yes (Hospitalization)
  Sender: FDA-Public Use
  Company Number: PL-BAYER-200612992GDS

PATIENT
  Age: 53 Year
  Sex: Male
  Weight: 70 kg

DRUGS (7)
  1. SORAFENIB [Suspect]
     Indication: METASTATIC RENAL CELL CARCINOMA
     Dosage: TOTAL DAILY DOSE: 1200 MG
     Route: 048
     Dates: start: 20060516, end: 20060627
  2. VEROSPIRON [Concomitant]
     Indication: OEDEMA PERIPHERAL
     Route: 048
  3. ESPUMISAN [Concomitant]
     Indication: DYSPEPSIA
     Route: 048
  4. CODEIN [Concomitant]
     Indication: COUGH
     Route: 048
     Dates: start: 20050801
  5. ACETYLCYSTEINE [Concomitant]
     Indication: UNEVALUABLE EVENT
     Route: 048
     Dates: start: 20050823, end: 20060626
  6. ACCOLATE [Concomitant]
     Indication: COUGH
     Route: 048
     Dates: start: 20050823, end: 20060626
  7. MORPHINI [Concomitant]
     Indication: PAIN
     Route: 048
     Dates: start: 20050701

REACTIONS (2)
  - DYSPNOEA [None]
  - PLEURAL EFFUSION [None]
